FAERS Safety Report 16023833 (Version 1)
Quarter: 2019Q1

REPORT INFORMATION
  Report Type: Spontaneous
  Country: US (occurrence: US)
  Receive Date: 20190301
  Receipt Date: 20190301
  Transmission Date: 20190418
  Serious: Yes (Other)
  Sender: FDA-Public Use
  Company Number: US-LANNETT COMPANY, INC.-US-2019LAN000182

PATIENT

DRUGS (1)
  1. BUPRENORPHINE HCL AND NALOXONE HCL [Suspect]
     Active Substance: BUPRENORPHINE HYDROCHLORIDE\NALOXONE HYDROCHLORIDE
     Indication: PRODUCT USED FOR UNKNOWN INDICATION
     Dosage: UNK
     Route: 013

REACTIONS (4)
  - Intentional product use issue [Unknown]
  - Drug abuse [Unknown]
  - Peripheral ischaemia [Unknown]
  - Foreign body embolism [Unknown]
